FAERS Safety Report 9798088 (Version 1)
Quarter: 2014Q1

REPORT INFORMATION
  Report Type: Spontaneous
  Country: IT (occurrence: None)
  Receive Date: 20140102
  Receipt Date: 20140102
  Transmission Date: 20141002
  Serious: Yes (Other)
  Sender: FDA-Public Use
  Company Number: 2099041

PATIENT
  Age: 42 Year
  Sex: Female
  Weight: 57 kg

DRUGS (1)
  1. DOCETAXEL [Suspect]
     Indication: BREAST CANCER
     Dosage: CYCLICAL NOT OTHERWISE SPECIFIED
     Route: 042
     Dates: start: 20130423, end: 20130423

REACTIONS (4)
  - Gingival bleeding [None]
  - Skin exfoliation [None]
  - Skin toxicity [None]
  - Gait disturbance [None]
